FAERS Safety Report 4471321-1 (Version None)
Quarter: 2004Q4

REPORT INFORMATION
  Report Type: 
  Country: None (occurrence: None)
  Receive Date: 20041006
  Receipt Date: 20040920
  Transmission Date: 20050328
  Serious: Yes (Hospitalization)
  Sender: FDA-Public Use
  Company Number: FR-2004-032834

PATIENT
  Age: 77 Year
  Sex: Male
  Weight: 104 kg

DRUGS (20)
  1. SOTALOL HCL [Suspect]
     Indication: ATRIAL FIBRILLATION
     Dosage: 240 MG/D, ORAL
     Route: 048
     Dates: start: 20040615
  2. OXACILLIN [Suspect]
     Dosage: 1.2 G, 1X/DAY, INTRAVENOUS
     Route: 042
     Dates: start: 20040729, end: 20040823
  3. ATARAX [Suspect]
     Dosage: 25 MG, ORAL
     Route: 048
     Dates: start: 20040811
  4. RIFAMPICIN [Suspect]
     Dosage: SEE IMAGE
     Route: 042
     Dates: start: 20040728, end: 20040824
  5. RIFAMPICIN [Suspect]
     Dosage: SEE IMAGE
     Route: 042
     Dates: start: 20040824
  6. VANCOMYCIN [Suspect]
     Indication: ENDOCARDITIS
     Dosage: SEE IMAGE
     Route: 042
     Dates: start: 20040720
  7. VANCOMYCIN [Suspect]
     Indication: ENDOCARDITIS
     Dosage: SEE IMAGE
     Route: 042
     Dates: start: 20040729
  8. AMLODIPINE BESYLATE [Suspect]
     Dosage: 5
     Dates: start: 20040515
  9. ATORVASTATIN CALCIUM [Concomitant]
  10. VICTAN (ETHYL LOFLAZEPATE) [Concomitant]
  11. COVERSYL (PERINDOPRIL) [Concomitant]
  12. LASILIX [Concomitant]
  13. DIFFU K [Concomitant]
  14. STILNOX /FRA/(ZOLPIDEM) [Concomitant]
  15. IMOVANE (ZOPICLONE) [Concomitant]
  16. PREVISCAN (FLUINDIONE) [Concomitant]
  17. DAFLON (DIOSMIN) [Concomitant]
  18. TRIMEBUTINE (TRIMEBUTINE) [Concomitant]
  19. MOVICOL (MACROGOL, SODIUM BICARBONATE) [Concomitant]
  20. SPAGULAX (PLANTAGO OVATA) [Concomitant]

REACTIONS (5)
  - ENDOCARDITIS STAPHYLOCOCCAL [None]
  - HAEMANGIOMA OF SKIN [None]
  - IMPLANT SITE INFECTION [None]
  - PURPURA [None]
  - TOXIC SKIN ERUPTION [None]
